FAERS Safety Report 19077521 (Version 1)
Quarter: 2021Q1

REPORT INFORMATION
  Report Type: Spontaneous
  Country: IT (occurrence: IT)
  Receive Date: 20210331
  Receipt Date: 20210331
  Transmission Date: 20210420
  Serious: Yes (Hospitalization, Other)
  Sender: FDA-Public Use
  Company Number: IT-GLAXOSMITHKLINE-IT2021GSK069741

PATIENT
  Age: 5 Decade
  Sex: Female

DRUGS (1)
  1. LAMOTRIGINE. [Suspect]
     Active Substance: LAMOTRIGINE
     Indication: PRODUCT USED FOR UNKNOWN INDICATION
     Dosage: UNK

REACTIONS (11)
  - Stevens-Johnson syndrome [Recovered/Resolved]
  - Lung opacity [Recovered/Resolved]
  - Oxygen consumption increased [Recovered/Resolved]
  - Mucosal disorder [Recovered/Resolved]
  - Pulmonary function test decreased [Recovered/Resolved]
  - Rash maculo-papular [Recovered/Resolved]
  - Organising pneumonia [Recovered/Resolved]
  - Blister [Recovered/Resolved]
  - Rash erythematous [Recovered/Resolved]
  - Skin disorder [Recovered/Resolved]
  - Skin lesion [Recovered/Resolved]
